FAERS Safety Report 23384428 (Version 1)
Quarter: 2024Q1

REPORT INFORMATION
  Report Type: Spontaneous
  Country: US (occurrence: US)
  Receive Date: 20240109
  Receipt Date: 20240109
  Transmission Date: 20240410
  Serious: No
  Sender: FDA-Public Use
  Company Number: US-PFIZER INC-PV202300209907

PATIENT
  Age: 64 Year
  Sex: Female
  Weight: 77.914 kg

DRUGS (2)
  1. IBRANCE [Suspect]
     Active Substance: PALBOCICLIB
     Indication: Breast cancer female
     Dosage: 1 (100 MG) CAPSULE ORAL DAILY
     Route: 048
     Dates: start: 20170724
  2. EXEMESTANE [Suspect]
     Active Substance: EXEMESTANE
     Indication: Breast cancer female
     Dosage: 1 TABLET (OF 25 MG) ORAL DAILY
     Route: 048
     Dates: start: 201901

REACTIONS (1)
  - Fatigue [Unknown]
